FAERS Safety Report 19065419 (Version 1)
Quarter: 2021Q1

REPORT INFORMATION
  Report Type: Spontaneous
  Country: PL (occurrence: PL)
  Receive Date: 20210327
  Receipt Date: 20210327
  Transmission Date: 20210420
  Serious: Yes (Hospitalization)
  Sender: FDA-Public Use
  Company Number: PL-ABBVIE-20K-129-3601610-00

PATIENT
  Age: 59 Year
  Sex: Male

DRUGS (7)
  1. VENETOCLAX. [Suspect]
     Active Substance: VENETOCLAX
     Route: 048
     Dates: start: 20201020, end: 20201026
  2. VENETOCLAX. [Suspect]
     Active Substance: VENETOCLAX
     Route: 048
     Dates: start: 20201013, end: 20201019
  3. VENETOCLAX. [Suspect]
     Active Substance: VENETOCLAX
     Indication: CHRONIC LYMPHOCYTIC LEUKAEMIA
     Route: 048
     Dates: start: 20201001, end: 20201001
  4. VENETOCLAX. [Suspect]
     Active Substance: VENETOCLAX
     Route: 048
     Dates: start: 20201103
  5. RITUXIMAB. [Concomitant]
     Active Substance: RITUXIMAB
     Indication: CHRONIC LYMPHOCYTIC LEUKAEMIA
     Dosage: 5 CYCLES
     Dates: start: 20201110
  6. VENETOCLAX. [Suspect]
     Active Substance: VENETOCLAX
     Route: 048
     Dates: start: 20201027, end: 20201102
  7. VENETOCLAX. [Suspect]
     Active Substance: VENETOCLAX
     Route: 048
     Dates: start: 20201006, end: 20201012

REACTIONS (15)
  - Neutropenia [Recovered/Resolved]
  - Blood lactate dehydrogenase increased [Recovering/Resolving]
  - Cold sweat [Recovered/Resolved]
  - Tachycardia [Recovered/Resolved]
  - Aspartate aminotransferase increased [Recovered/Resolved]
  - Blood potassium increased [Recovered/Resolved]
  - Blood phosphorus increased [Recovered/Resolved]
  - Tumour lysis syndrome [Recovered/Resolved]
  - Blood calcium decreased [Recovered/Resolved]
  - Blood uric acid increased [Recovered/Resolved]
  - Vomiting [Recovered/Resolved]
  - General physical condition abnormal [Recovered/Resolved]
  - Hypotension [Recovered/Resolved]
  - Pallor [Recovered/Resolved]
  - Oliguria [Recovered/Resolved]

NARRATIVE: CASE EVENT DATE: 20201001
